FAERS Safety Report 13535178 (Version 2)
Quarter: 2017Q3

REPORT INFORMATION
  Report Type: Spontaneous
  Country: US (occurrence: US)
  Receive Date: 20170511
  Receipt Date: 20170810
  Transmission Date: 20171127
  Serious: No
  Sender: FDA-Public Use
  Company Number: US-VIFOR (INTERNATIONAL) INC.-VIT-2017-03701

PATIENT
  Age: 68 Year
  Sex: Male

DRUGS (22)
  1. METOPROLOL. [Concomitant]
     Active Substance: METOPROLOL
  2. PANTOPRAZOLE [Concomitant]
     Active Substance: PANTOPRAZOLE
  3. KIONEX [Concomitant]
     Active Substance: SODIUM POLYSTYRENE SULFONATE
  4. VELTASSA [Suspect]
     Active Substance: PATIROMER
     Indication: HYPERKALAEMIA
     Route: 048
     Dates: start: 201703, end: 20170420
  5. NIFEDICAL XL [Concomitant]
     Active Substance: NIFEDIPINE
  6. TRAMADL/APAP [Concomitant]
  7. CHONDROITIN [Concomitant]
     Active Substance: CHONDROITIN
  8. SODIUM BICARBONATE. [Concomitant]
     Active Substance: SODIUM BICARBONATE
  9. CLONIDINE. [Concomitant]
     Active Substance: CLONIDINE
  10. FLAXSEED [Concomitant]
     Active Substance: FLAX SEED
  11. ASCORBIC ACID. [Concomitant]
     Active Substance: ASCORBIC ACID
  12. GENERLAC [Concomitant]
     Active Substance: LACTULOSE
     Dosage: 10GM/15
  13. OMEGA-3-ACID [Concomitant]
  14. ROSUVASTATIN. [Concomitant]
     Active Substance: ROSUVASTATIN
  15. WELCHOL [Concomitant]
     Active Substance: COLESEVELAM HYDROCHLORIDE
  16. SIMVASTATIN. [Concomitant]
     Active Substance: SIMVASTATIN
  17. LOSARTAN POTASSIUM. [Concomitant]
     Active Substance: LOSARTAN POTASSIUM
  18. FUROSEMIDE. [Concomitant]
     Active Substance: FUROSEMIDE
  19. GLUCOSAMINE [Concomitant]
     Active Substance: GLUCOSAMINE
  20. CLOBETASOL [Concomitant]
     Active Substance: CLOBETASOL
  21. BISACODYL. [Concomitant]
     Active Substance: BISACODYL
  22. TRADJENTA [Concomitant]
     Active Substance: LINAGLIPTIN

REACTIONS (3)
  - Dyschezia [Not Recovered/Not Resolved]
  - Faeces hard [Not Recovered/Not Resolved]
  - Constipation [Not Recovered/Not Resolved]

NARRATIVE: CASE EVENT DATE: 201703
